FAERS Safety Report 5499688-6 (Version None)
Quarter: 2007Q4

REPORT INFORMATION
  Report Type: 
  Country: None (occurrence: None)
  Receive Date: 20071026
  Receipt Date: 20071019
  Transmission Date: 20080405
  Serious: Yes (Hospitalization, Other)
  Sender: FDA-Public Use
  Company Number: HQWYE095614JUL04

PATIENT
  Sex: Female

DRUGS (1)
  1. PREMPRO [Suspect]
     Dosage: UNKNOWN
     Dates: start: 19990419, end: 20020926

REACTIONS (4)
  - AMNESIA [None]
  - ARTHRALGIA [None]
  - BACK PAIN [None]
  - BREAST CANCER METASTATIC [None]
